FAERS Safety Report 4510674-2 (Version None)
Quarter: 2004Q4

REPORT INFORMATION
  Report Type: 
  Country: None (occurrence: None)
  Receive Date: 20041025
  Receipt Date: 20040309
  Transmission Date: 20050328
  Serious: Yes (Other)
  Sender: FDA-Public Use
  Company Number: NSADSS2002038115

PATIENT
  Age: 56 Year
  Sex: Female
  Weight: 73.4827 kg

DRUGS (12)
  1. REMICADE [Suspect]
     Indication: RHEUMATOID ARTHRITIS
     Dosage: SEE IMAGE INTRAVENOUS DRIP
     Route: 041
     Dates: start: 20020501, end: 20020501
  2. REMICADE [Suspect]
     Indication: RHEUMATOID ARTHRITIS
     Dosage: SEE IMAGE INTRAVENOUS DRIP
     Route: 041
     Dates: start: 20020609, end: 20020609
  3. REMICADE [Suspect]
     Indication: RHEUMATOID ARTHRITIS
     Dosage: SEE IMAGE INTRAVENOUS DRIP
     Route: 041
     Dates: start: 20020924, end: 20020924
  4. REMICADE [Suspect]
     Indication: RHEUMATOID ARTHRITIS
     Dosage: SEE IMAGE INTRAVENOUS DRIP
     Route: 041
     Dates: start: 20030211, end: 20030211
  5. CELEBREX [Concomitant]
  6. MULTIVITAMIN [Concomitant]
  7. FOLIC ACID [Concomitant]
  8. CALCIUM (CALCIUM) [Concomitant]
  9. PREDNISONE [Concomitant]
  10. PREMPRO 14/14 [Concomitant]
  11. PEPCID [Concomitant]
  12. METHOTREXATE [Concomitant]

REACTIONS (2)
  - SYSTEMIC LUPUS ERYTHEMATOSUS [None]
  - THROMBOCYTOPENIA [None]
